FAERS Safety Report 23697954 (Version 1)
Quarter: 2024Q2

REPORT INFORMATION
  Report Type: Spontaneous
  Country: US (occurrence: US)
  Receive Date: 20240402
  Receipt Date: 20240402
  Transmission Date: 20240716
  Serious: Yes (Hospitalization, Other)
  Sender: FDA-Public Use
  Company Number: US-JNJFOC-20240368587

PATIENT
  Sex: Male

DRUGS (1)
  1. TALVEY [Suspect]
     Active Substance: TALQUETAMAB-TGVS
     Indication: Product used for unknown indication
     Route: 065

REACTIONS (10)
  - Gastric haemorrhage [Unknown]
  - Neuropathy peripheral [Unknown]
  - Sepsis [Unknown]
  - Cystitis [Unknown]
  - Decreased immune responsiveness [Unknown]
  - Malnutrition [Unknown]
  - Taste disorder [Unknown]
  - Dry skin [Unknown]
  - Rash [Unknown]
  - Nail deformation [Unknown]
